FAERS Safety Report 5026612-2 (Version None)
Quarter: 2006Q2

REPORT INFORMATION
  Report Type: 
  Country: None (occurrence: None)
  Receive Date: 20060613
  Receipt Date: 20060613
  Transmission Date: 20061013
  Serious: Yes (Hospitalization, Other)
  Sender: FDA-Public Use
  Company Number: None

PATIENT
  Sex: Female

DRUGS (1)
  1. OMNIPAQUE 300 [Suspect]
     Indication: HYPOXIA
     Dosage: 1 TIME IV
     Route: 042
     Dates: start: 20060518

REACTIONS (3)
  - EXTRAVASATION [None]
  - SKIN EXFOLIATION [None]
  - SKIN NECROSIS [None]
